FAERS Safety Report 19506980 (Version 1)
Quarter: 2021Q3

REPORT INFORMATION
  Report Type: Spontaneous
  Country: US (occurrence: US)
  Receive Date: 20210708
  Receipt Date: 20210708
  Transmission Date: 20211014
  Serious: No
  Sender: FDA-Public Use
  Company Number: US-JNJFOC-20210704183

PATIENT
  Age: 7 Decade
  Sex: Female

DRUGS (1)
  1. WOMENS ROGAINE UNSCENTED [Suspect]
     Active Substance: MINOXIDIL
     Indication: ALOPECIA
     Dosage: HALF A CAPFUL AS DIRECTED
     Route: 061
     Dates: start: 202101

REACTIONS (1)
  - Hair colour changes [Unknown]

NARRATIVE: CASE EVENT DATE: 202105
